FAERS Safety Report 8045877-6 (Version None)
Quarter: 2012Q1

REPORT INFORMATION
  Report Type: 
  Country: None (occurrence: None)
  Receive Date: 20120113
  Receipt Date: 20110728
  Transmission Date: 20120608
  Serious: Yes (Other)
  Sender: FDA-Public Use
  Company Number: US-GLAXOSMITHKLINE-A0939595A

PATIENT
  Age: 56 Year
  Sex: Female

DRUGS (3)
  1. TYKERB [Suspect]
     Indication: BREAST CANCER
     Dosage: 1250MG PER DAY
     Route: 048
  2. HERCEPTIN [Suspect]
     Route: 065
  3. DICLOFENAC [Concomitant]

REACTIONS (10)
  - DIARRHOEA [None]
  - WEIGHT DECREASED [None]
  - DRUG INTERACTION [None]
  - DYSURIA [None]
  - FATIGUE [None]
  - TRANSIENT ISCHAEMIC ATTACK [None]
  - ADVERSE DRUG REACTION [None]
  - ABDOMINAL PAIN LOWER [None]
  - MUSCLE SPASMS [None]
  - CENTRAL NERVOUS SYSTEM LESION [None]
